FAERS Safety Report 9424461 (Version 3)
Quarter: 2016Q4

REPORT INFORMATION
  Report Type: Spontaneous
  Country: US (occurrence: US)
  Receive Date: 20130729
  Receipt Date: 20161129
  Transmission Date: 20170207
  Serious: Yes (Hospitalization)
  Sender: FDA-Public Use
  Company Number: US-COVIDIEN/TYCO HEALTHCARE/MALLINCKRODT-T201303828

PATIENT
  Age: 10 Year
  Sex: Male

DRUGS (2)
  1. GABLOFEN [Suspect]
     Active Substance: BACLOFEN
     Indication: MUSCLE SPASTICITY
     Dosage: 170 ?G, QD
     Route: 037
  2. GABLOFEN [Suspect]
     Active Substance: BACLOFEN
     Dosage: 150 ?G, QD

REACTIONS (10)
  - Dizziness [Unknown]
  - Respiratory depression [Recovered/Resolved]
  - Coma [Recovered/Resolved]
  - Overdose [Recovered/Resolved]
  - Unresponsive to stimuli [Unknown]
  - Withdrawal syndrome [Recovered/Resolved]
  - Device issue [Recovered/Resolved]
  - Incorrect route of drug administration [Recovered/Resolved]
  - Oxygen saturation decreased [Unknown]
  - Somnolence [Unknown]

NARRATIVE: CASE EVENT DATE: 20130719
